FAERS Safety Report 5401746-9 (Version None)
Quarter: 2007Q3

REPORT INFORMATION
  Report Type: 
  Country: None (occurrence: None)
  Receive Date: 20070718
  Receipt Date: 20060928
  Transmission Date: 20080115
  Serious: Yes (Hospitalization, Other)
  Sender: FDA-Public Use
  Company Number: 2006120434

PATIENT
  Sex: Male

DRUGS (3)
  1. CELEBREX [Suspect]
     Dates: start: 20000301
  2. BEXTRA [Suspect]
     Dates: start: 20020601, end: 20020901
  3. VIOXX [Suspect]
     Dates: start: 20000601

REACTIONS (1)
  - MYOCARDIAL INFARCTION [None]
